FAERS Safety Report 25283277 (Version 1)
Quarter: 2025Q2

REPORT INFORMATION
  Report Type: Spontaneous
  Country: US (occurrence: None)
  Receive Date: 20250507
  Receipt Date: 20250507
  Transmission Date: 20250716
  Serious: Yes (Death)
  Sender: FDA-CTU
  Company Number: None

PATIENT
  Age: 78 Year
  Sex: Male

DRUGS (2)
  1. TAVNEOS [Suspect]
     Active Substance: AVACOPAN
     Dates: start: 20250501
  2. TAVNEOS [Concomitant]
     Active Substance: AVACOPAN
     Dates: start: 20250501

REACTIONS (1)
  - Death [None]

NARRATIVE: CASE EVENT DATE: 20250504
